FAERS Safety Report 5811468-8 (Version None)
Quarter: 2008Q3

REPORT INFORMATION
  Report Type: 
  Country: None (occurrence: None)
  Receive Date: 20080714
  Receipt Date: 20080627
  Transmission Date: 20090109
  Serious: Yes (Hospitalization)
  Sender: FDA-Public Use
  Company Number: JPI-P-003968

PATIENT
  Age: 58 Year
  Sex: Male

DRUGS (13)
  1. LUVOX [Suspect]
     Indication: DEPRESSION
     Dosage: (100 MG, 1 D), ORAL
     Route: 048
     Dates: start: 20080521, end: 20080528
  2. VOGLIBOSE (VOGLIBOSE) [Suspect]
     Indication: DIABETES MELLITUS
     Dosage: (0.9 MG, 1 D), ORAL
     Route: 048
     Dates: start: 20080512, end: 20080603
  3. EPALRESTAT (EPALRESTAT) [Suspect]
     Indication: DIABETIC NEUROPATHY
     Dosage: (150 MG, 1 D), ORAL
     Route: 048
     Dates: start: 20080513, end: 20080526
  4. DAI-KENCHU-TO [Suspect]
     Indication: CONSTIPATION
     Dosage: (7.5 MG, 1 D), ORAL
     Route: 048
     Dates: start: 20080519, end: 20080603
  5. CANDESARTAN CILEXETIL [Suspect]
     Indication: HYPERTENSION
     Dosage: (8 MG, 1 D), ORAL
     Route: 048
     Dates: start: 20080502, end: 20080526
  6. FERROUS FUMARATE [Suspect]
     Indication: IRON DEFICIENCY ANAEMIA
     Dosage: (305 MG, 1 D), ORAL
     Route: 048
     Dates: start: 20080508, end: 20080603
  7. TELMISARTAN (TELMISARTAN) [Concomitant]
  8. BENFOTIAMINE, B6, B12 COMBINED DRUG [Concomitant]
  9. ZOLPIDEM TARTRATE [Concomitant]
  10. MOSAPRIDE CITRATE (MOSAPRIDE CITRATE) [Concomitant]
  11. MAGNESIUM OXIDE (MAGNESIUM OXIDE) [Concomitant]
  12. INSULIN DETEMIR (INSULIN DETEMIR) [Concomitant]
  13. INSULIN LISPRO (INSULIN LISPRO) [Concomitant]

REACTIONS (3)
  - ALANINE AMINOTRANSFERASE INCREASED [None]
  - ASPARTATE AMINOTRANSFERASE INCREASED [None]
  - HEPATIC FUNCTION ABNORMAL [None]
